FAERS Safety Report 7691375-9 (Version None)
Quarter: 2011Q3

REPORT INFORMATION
  Report Type: 
  Country: None (occurrence: None)
  Receive Date: 20110818
  Receipt Date: 20110808
  Transmission Date: 20111222
  Serious: Yes (Other)
  Sender: FDA-Public Use
  Company Number: PHEH2011US01081

PATIENT
  Sex: Male

DRUGS (15)
  1. CRESTOR [Concomitant]
     Dosage: UNK UKN, OT
  2. DIOVAN [Concomitant]
     Dosage: UNK UKN, OT
  3. TRIAMTEREN [Concomitant]
     Dosage: UNK UKN, OT
  4. METOPROLOL TARTRATE [Concomitant]
     Dosage: UNK UKN, OT
  5. MELATONIN [Concomitant]
     Dosage: UNK UKN, OT
  6. DILTIAZEM [Concomitant]
     Dosage: UNK UKN, OT
  7. ZETIA [Concomitant]
     Dosage: UNK UKN, OT
  8. MULTI-VITAMINS [Concomitant]
     Dosage: UNK UKN, OT
  9. LUTEIN [Concomitant]
     Dosage: UNK UKN, OT
  10. ASPIRIN [Concomitant]
     Dosage: UNK UKN, OT
  11. LOVAZA [Concomitant]
     Dosage: UNK UKN, OT
  12. PRILOSEC [Concomitant]
     Dosage: UNK UKN, OT
  13. NEURONTIN [Concomitant]
  14. GILENYA [Suspect]
     Indication: MULTIPLE SCLEROSIS
     Dosage: 0.5 MG, QD
     Route: 048
     Dates: start: 20110331
  15. VITAMIN D [Concomitant]
     Dosage: UNK UKN, OT

REACTIONS (2)
  - LYMPHOCYTE COUNT DECREASED [None]
  - DIVERTICULITIS [None]
